FAERS Safety Report 19397634 (Version 1)
Quarter: 2021Q2

REPORT INFORMATION
  Report Type: Spontaneous
  Country: DE (occurrence: DE)
  Receive Date: 20210610
  Receipt Date: 20210610
  Transmission Date: 20210717
  Serious: Yes (Hospitalization)
  Sender: FDA-Public Use
  Company Number: DE-TEVA-2021-DE-1920060

PATIENT
  Age: 69 Year
  Sex: Male

DRUGS (7)
  1. HYDROXYCHLOROQUINE [Suspect]
     Active Substance: HYDROXYCHLOROQUINE
     Indication: MENINGOENCEPHALITIS VIRAL
  2. HYDROXYCHLOROQUINE [Suspect]
     Active Substance: HYDROXYCHLOROQUINE
     Indication: COVID-19
     Route: 065
  3. MYCOPHENOLIC ACID. [Suspect]
     Active Substance: MYCOPHENOLIC ACID
     Indication: IMMUNOSUPPRESSANT DRUG THERAPY
     Route: 065
  4. TACROLIMUS. [Suspect]
     Active Substance: TACROLIMUS
     Indication: IMMUNOSUPPRESSANT DRUG THERAPY
     Route: 065
  5. HYDROCORTISONE. [Suspect]
     Active Substance: HYDROCORTISONE
     Indication: COVID-19 PNEUMONIA
     Dosage: 200 MILLIGRAM DAILY;
     Route: 042
  6. LEVETIRACETAM. [Concomitant]
     Active Substance: LEVETIRACETAM
     Indication: MENINGOENCEPHALITIS VIRAL
     Route: 065
  7. INSULIN [Concomitant]
     Active Substance: INSULIN NOS
     Indication: COMPLICATIONS OF TRANSPLANTED PANCREAS
     Route: 065

REACTIONS (7)
  - Nephritis [Recovering/Resolving]
  - Complications of transplanted pancreas [Recovering/Resolving]
  - COVID-19 [Recovered/Resolved]
  - COVID-19 pneumonia [Recovering/Resolving]
  - Meningoencephalitis viral [Recovered/Resolved]
  - Complications of transplanted kidney [Recovering/Resolving]
  - Off label use [Unknown]
